FAERS Safety Report 9264207 (Version 4)
Quarter: 2013Q2

REPORT INFORMATION
  Report Type: Spontaneous
  Country: US (occurrence: US)
  Receive Date: 20130430
  Receipt Date: 20130612
  Transmission Date: 20140414
  Serious: Yes (Other)
  Sender: FDA-Public Use
  Company Number: US-ASTRAZENECA-2012SE56091

PATIENT
  Age: 37 Year
  Sex: Female
  Weight: 92.5 kg

DRUGS (4)
  1. NEXIUM [Suspect]
     Indication: GASTROOESOPHAGEAL REFLUX DISEASE
     Route: 048
  2. MAALOX [Concomitant]
     Dosage: AS NEEDED
  3. TUMS [Concomitant]
     Dosage: AS NEEDED
  4. PEPTO BISMOL [Concomitant]
     Dosage: AS NEEDED

REACTIONS (10)
  - Uterine cancer [Unknown]
  - Irritable bowel syndrome [Unknown]
  - Cough [Unknown]
  - Condition aggravated [Unknown]
  - Flatulence [Unknown]
  - Headache [Unknown]
  - Diarrhoea [Unknown]
  - Malaise [Unknown]
  - Drug dose omission [Unknown]
  - Intentional drug misuse [Unknown]
